FAERS Safety Report 12863745 (Version 1)
Quarter: 2016Q4

REPORT INFORMATION
  Report Type: Spontaneous
  Country: IR (occurrence: IR)
  Receive Date: 20161019
  Receipt Date: 20161019
  Transmission Date: 20170207
  Serious: Yes (Other)
  Sender: FDA-Public Use
  Company Number: IR-MYLANLABS-2016M1044629

PATIENT

DRUGS (4)
  1. CLINDAMYCIN. [Suspect]
     Active Substance: CLINDAMYCIN
  2. AMPICILLIN [Suspect]
     Active Substance: AMPICILLIN
  3. BETAMETHASONE. [Suspect]
     Active Substance: BETAMETHASONE
  4. GENTAMICIN. [Suspect]
     Active Substance: GENTAMICIN

REACTIONS (8)
  - Foetal growth restriction [Unknown]
  - Anaemia [Unknown]
  - Foetal exposure during pregnancy [Unknown]
  - Low birth weight baby [Unknown]
  - Foetal heart rate deceleration abnormality [Unknown]
  - Premature baby [Unknown]
  - Skin mass [Unknown]
  - Tachycardia foetal [Unknown]
